FAERS Safety Report 5624011-3 (Version None)
Quarter: 2008Q1

REPORT INFORMATION
  Report Type: 
  Country: None (occurrence: None)
  Receive Date: 20080213
  Receipt Date: 20080207
  Transmission Date: 20080703
  Serious: Yes (Hospitalization)
  Sender: FDA-Public Use
  Company Number: US-JNJFOC-20080201540

PATIENT
  Sex: Male
  Weight: 99.79 kg

DRUGS (4)
  1. RISPERDAL [Suspect]
     Route: 048
  2. RISPERDAL [Suspect]
     Indication: SCHIZOPHRENIA
     Route: 048
  3. HALDOL [Concomitant]
     Indication: MANIA
  4. ANTIBIOTICS [Concomitant]
     Indication: STAPHYLOCOCCAL INFECTION

REACTIONS (3)
  - MANIA [None]
  - STAPHYLOCOCCAL INFECTION [None]
  - WEIGHT INCREASED [None]
